FAERS Safety Report 5566467-0 (Version None)
Quarter: 2007Q4

REPORT INFORMATION
  Report Type: 
  Country: None (occurrence: None)
  Receive Date: 20071219
  Receipt Date: 20071106
  Transmission Date: 20080405
  Serious: No
  Sender: FDA-Public Use
  Company Number: US-ABBOTT-07P-163-0423972-00

PATIENT
  Weight: 52.21 kg

DRUGS (2)
  1. VICODIN [Suspect]
     Indication: BACK PAIN
     Dates: start: 20071013, end: 20071015
  2. HYDROCODONE BITARTRATE [Concomitant]
     Indication: BACK PAIN
     Dates: start: 20071009, end: 20071013

REACTIONS (1)
  - DRUG INEFFECTIVE [None]
